FAERS Safety Report 9741064 (Version 1)
Quarter: 2013Q4

REPORT INFORMATION
  Report Type: Spontaneous
  Country: US (occurrence: US)
  Receive Date: 20131209
  Receipt Date: 20131209
  Transmission Date: 20140711
  Serious: No
  Sender: FDA-Public Use
  Company Number: US-TEVA-449947USA

PATIENT
  Age: 26 Year
  Sex: Female
  Weight: 77.18 kg

DRUGS (2)
  1. PLAN B ONE-STEP [Suspect]
     Indication: POST COITAL CONTRACEPTION
     Dosage: 1.5 MILLIGRAM DAILY;
     Route: 048
     Dates: start: 20131118, end: 20131118
  2. VITAMINS [Concomitant]
     Indication: SUPPLEMENTATION THERAPY

REACTIONS (7)
  - Paraesthesia [Recovered/Resolved]
  - Mood altered [Recovered/Resolved]
  - Irritability [Recovered/Resolved]
  - Abdominal distension [Recovered/Resolved]
  - Menstruation irregular [Not Recovered/Not Resolved]
  - Pelvic pain [Recovered/Resolved]
  - Breast tenderness [Recovered/Resolved]
